FAERS Safety Report 16945272 (Version 3)
Quarter: 2019Q4

REPORT INFORMATION
  Report Type: Spontaneous
  Country: US (occurrence: US)
  Receive Date: 20191022
  Receipt Date: 20191112
  Transmission Date: 20200122
  Serious: Yes (Other)
  Sender: FDA-Public Use
  Company Number: US-GW PHARMA-201910USGW3838

PATIENT

DRUGS (9)
  1. RISPERDAL [Concomitant]
     Active Substance: RISPERIDONE
     Indication: FOCAL DYSCOGNITIVE SEIZURES
  2. MOMETASONE [Concomitant]
     Active Substance: MOMETASONE
     Indication: PRODUCT USED FOR UNKNOWN INDICATION
     Dosage: 50 MCG/ACTUATION
     Route: 045
  3. BROMPHENIRAMINE MALEATE, PSEUDOEPHEDRINE HYDROCHLORIDE AND DEXTROMETHO [Concomitant]
     Indication: PRODUCT USED FOR UNKNOWN INDICATION
     Dosage: 2MG-30 MG-10 MG/5ML
     Route: 048
  4. EPIDIOLEX [Suspect]
     Active Substance: CANNABIDIOL
     Indication: SEVERE MYOCLONIC EPILEPSY OF INFANCY
     Dosage: 30.90 MG/KG, 1530 MILLIGRAM, BID
     Route: 048
     Dates: start: 20190506
  5. ONFI [Concomitant]
     Active Substance: CLOBAZAM
     Indication: SEVERE MYOCLONIC EPILEPSY OF INFANCY
     Dosage: 10 MILLIGRAM, BID
     Route: 048
  6. ALBUTEROL SULFATE. [Concomitant]
     Active Substance: ALBUTEROL SULFATE
     Indication: PRODUCT USED FOR UNKNOWN INDICATION
     Dosage: 2.5 MG/3 ML, UNK
     Route: 065
  7. RISPERDAL [Concomitant]
     Active Substance: RISPERIDONE
     Indication: PARTIAL SEIZURES
     Dosage: 1.25 MILLIGRAM, QD (1 TAB AM, HALF TAB MID-DAY AND 1 TAB PM)
     Route: 048
  8. RISPERDAL [Concomitant]
     Active Substance: RISPERIDONE
     Indication: EPILEPSY
     Dosage: 0.5 MILLIGRAM, BID
     Route: 048
  9. TRIAMCINOLONE ACETONIDE. [Concomitant]
     Active Substance: TRIAMCINOLONE ACETONIDE
     Indication: PRODUCT USED FOR UNKNOWN INDICATION
     Dosage: UNK
     Route: 061

REACTIONS (16)
  - Breast cyst [Unknown]
  - Anxiety [Unknown]
  - Sleep apnoea syndrome [Not Recovered/Not Resolved]
  - Balance disorder [Unknown]
  - Increased appetite [Unknown]
  - Aggression [Unknown]
  - Overdose [Unknown]
  - Tinnitus [Unknown]
  - Mood swings [Unknown]
  - Heart rate decreased [Unknown]
  - Snoring [Unknown]
  - Menstruation irregular [Unknown]
  - Alopecia [Unknown]
  - Temperature intolerance [Unknown]
  - Irritability [Unknown]
  - Weight increased [Unknown]

NARRATIVE: CASE EVENT DATE: 2019
